FAERS Safety Report 5244587-8 (Version None)
Quarter: 2007Q1

REPORT INFORMATION
  Report Type: 
  Country: None (occurrence: None)
  Receive Date: 20070222
  Receipt Date: 20070210
  Transmission Date: 20070707
  Serious: Yes (Life-Threatening, Hospitalization)
  Sender: FDA-Public Use
  Company Number: US-AMGEN-US210911

PATIENT
  Sex: Female
  Weight: 25 kg

DRUGS (7)
  1. NEUPOGEN [Suspect]
     Indication: CHEMOTHERAPY
     Route: 042
     Dates: start: 20070208
  2. DOPAMINE HCL [Concomitant]
     Dates: start: 20070208
  3. CEFEPIME [Concomitant]
     Dates: start: 20070207
  4. VANCOMYCIN HYDROCHLORIDE [Concomitant]
     Dates: start: 20070207, end: 20070210
  5. TOBRAMYCIN [Concomitant]
     Dates: start: 20070207
  6. FLUCONAZOLE [Concomitant]
     Dates: start: 20070207
  7. HYDROCORTISONE [Concomitant]
     Dates: start: 20070207

REACTIONS (6)
  - ACUTE RESPIRATORY DISTRESS SYNDROME [None]
  - HYPOTENSION [None]
  - OXYGEN SATURATION DECREASED [None]
  - PETECHIAE [None]
  - PULMONARY OEDEMA [None]
  - TACHYCARDIA [None]
